FAERS Safety Report 24794319 (Version 2)
Quarter: 2025Q1

REPORT INFORMATION
  Report Type: Spontaneous
  Country: PR (occurrence: PR)
  Receive Date: 20241231
  Receipt Date: 20250103
  Transmission Date: 20250408
  Serious: Yes (Hospitalization)
  Sender: PFIZER
  Company Number: PR-PFIZER INC-202400333407

PATIENT
  Age: 80 Year
  Sex: Female

DRUGS (2)
  1. XELJANZ XR [Suspect]
     Active Substance: TOFACITINIB CITRATE
     Dosage: 11 MG, DAILY
     Route: 048
     Dates: start: 2023
  2. PROLIA [Concomitant]
     Active Substance: DENOSUMAB

REACTIONS (2)
  - Hypertension [Recovering/Resolving]
  - Pain in extremity [Recovering/Resolving]
